FAERS Safety Report 6786405-2 (Version None)
Quarter: 2010Q2

REPORT INFORMATION
  Report Type: 
  Country: None (occurrence: None)
  Receive Date: 20100623
  Receipt Date: 20100617
  Transmission Date: 20101027
  Serious: Yes (Hospitalization, Disabling)
  Sender: FDA-Public Use
  Company Number: A0796411A

PATIENT
  Age: 37 Year
  Sex: Female
  Weight: 86.4 kg

DRUGS (6)
  1. AVANDIA [Suspect]
     Dosage: 4MG TWICE PER DAY
     Route: 048
     Dates: start: 20000617, end: 20060721
  2. AVANDAMET [Suspect]
     Indication: DIABETES MELLITUS
     Route: 048
     Dates: start: 20060905, end: 20070510
  3. AMARYL [Concomitant]
  4. GLUCOTROL [Concomitant]
  5. WELLBUTRIN SR [Concomitant]
  6. BACTRIM [Concomitant]

REACTIONS (3)
  - CORONARY ARTERY DISEASE [None]
  - MYOCARDIAL INFARCTION [None]
  - PRINZMETAL ANGINA [None]
